FAERS Safety Report 21450565 (Version 1)
Quarter: 2022Q4

REPORT INFORMATION
  Report Type: Spontaneous
  Country: US (occurrence: US)
  Receive Date: 20221013
  Receipt Date: 20221013
  Transmission Date: 20230113
  Serious: Yes (Death)
  Sender: FDA-Public Use
  Company Number: US-PARI RESPIRATORY EQUIPMENT, INC.-2022PAR00059

PATIENT
  Age: 13 Year
  Sex: Female
  Weight: 37.007 kg

DRUGS (1)
  1. KITABIS PAK [Suspect]
     Active Substance: TOBRAMYCIN
     Dosage: 5 ML (300 MG) VIA NEBULIZER, EVERY 12 HOURS FOR 28 DAYS. ALTERNATE ON DURING EVEN MONTHS AND OFF DUR

REACTIONS (1)
  - Death [Fatal]

NARRATIVE: CASE EVENT DATE: 20220925
